FAERS Safety Report 9929062 (Version 3)
Quarter: 2014Q1

REPORT INFORMATION
  Report Type: Spontaneous
  Country: US (occurrence: US)
  Receive Date: 20140227
  Receipt Date: 20140318
  Transmission Date: 20141002
  Serious: No
  Sender: FDA-Public Use
  Company Number: US-GILEAD-2014-0095518

PATIENT
  Age: 59 Year
  Sex: Male

DRUGS (3)
  1. LETAIRIS [Suspect]
     Indication: PRODUCT USED FOR UNKNOWN INDICATION
     Dosage: 10 MG, QD
     Route: 065
     Dates: start: 20130913
  2. TYVASO [Suspect]
     Indication: PRODUCT USED FOR UNKNOWN INDICATION
     Dosage: UNK
     Route: 065
     Dates: start: 20140224, end: 20140224
  3. TYVASO [Suspect]
     Dosage: UNK, BID
     Route: 065

REACTIONS (7)
  - Hypertension [Recovered/Resolved]
  - Hypertension [Unknown]
  - Chest pain [Recovered/Resolved]
  - Chest discomfort [Unknown]
  - Restlessness [Recovered/Resolved]
  - Headache [Recovered/Resolved]
  - Headache [Unknown]
